FAERS Safety Report 8045178-6 (Version None)
Quarter: 2012Q1

REPORT INFORMATION
  Report Type: 
  Country: None (occurrence: None)
  Receive Date: 20120113
  Receipt Date: 20110720
  Transmission Date: 20120608
  Serious: Yes (Other)
  Sender: FDA-Public Use
  Company Number: RU-ASTRAZENECA-2011SE44041

PATIENT
  Age: 25 Year
  Sex: Male
  Weight: 95 kg

DRUGS (1)
  1. SEROQUEL XR [Suspect]
     Indication: ACUTE PSYCHOSIS
     Route: 048
     Dates: start: 20110505

REACTIONS (1)
  - URINARY RETENTION [None]
